FAERS Safety Report 9226727 (Version 1)
Quarter: 2013Q2

REPORT INFORMATION
  Report Type: Spontaneous
  Country: JP (occurrence: JP)
  Receive Date: 20130412
  Receipt Date: 20130412
  Transmission Date: 20140414
  Serious: Yes (Hospitalization, Disabling)
  Sender: FDA-Public Use
  Company Number: JP-009507513-2012SP013378

PATIENT
  Age: 74 Year
  Sex: Male
  Weight: 64 kg

DRUGS (8)
  1. TEMODAL [Suspect]
     Indication: ANAPLASTIC ASTROCYTOMA
     Dosage: 340 MG, QD
     Route: 048
     Dates: start: 20120214, end: 20120218
  2. PREDONINE [Suspect]
     Indication: BRAIN OEDEMA
     Dosage: 15 MG, QD
     Route: 048
     Dates: start: 20110815, end: 20120313
  3. NASEA [Concomitant]
     Indication: PROPHYLAXIS OF NAUSEA AND VOMITING
     Dosage: 0.1 MG, UNK
     Route: 048
     Dates: start: 20120214, end: 20120218
  4. BENZALIN [Concomitant]
     Indication: INSOMNIA
     Dosage: 5 MG, UNK
     Route: 048
     Dates: start: 20110526, end: 20120313
  5. GRAMALIL [Concomitant]
     Indication: RESTLESSNESS
     Dosage: 50 MG, UNK
     Route: 048
     Dates: start: 20120214, end: 20120313
  6. MICARDIS [Concomitant]
     Indication: HYPERTENSION
     Dosage: 20 MG, UNK
     Route: 048
     Dates: start: 20110607, end: 20120313
  7. PLETAAL [Concomitant]
     Indication: PROPHYLAXIS
     Dosage: 100 MG, BID
     Route: 048
     Dates: start: 200511, end: 20120313
  8. GASTER D [Concomitant]
     Indication: PROPHYLAXIS AGAINST GASTROINTESTINAL ULCER
     Dosage: 20 MG, BID
     Route: 048
     Dates: start: 20110815, end: 20120313

REACTIONS (4)
  - Herpes simplex encephalitis [Not Recovered/Not Resolved]
  - Pneumonia [Recovered/Resolved]
  - Influenza [Recovered/Resolved]
  - Upper respiratory tract infection [Recovered/Resolved]
